FAERS Safety Report 21291962 (Version 1)
Quarter: 2022Q3

REPORT INFORMATION
  Report Type: Spontaneous
  Country: US (occurrence: US)
  Receive Date: 20220904
  Receipt Date: 20220904
  Transmission Date: 20221026
  Serious: Yes (Other)
  Sender: FDA-Public Use
  Company Number: US-JNJFOC-20220859014

PATIENT
  Sex: Male
  Weight: 68.100 kg

DRUGS (4)
  1. INVEGA SUSTENNA [Suspect]
     Active Substance: PALIPERIDONE PALMITATE
     Indication: Schizophrenia
     Dosage: DAY-0
     Route: 030
     Dates: start: 20220824
  2. INVEGA SUSTENNA [Suspect]
     Active Substance: PALIPERIDONE PALMITATE
  3. INVEGA SUSTENNA [Suspect]
     Active Substance: PALIPERIDONE PALMITATE
  4. LISINOPRIL [Suspect]
     Active Substance: LISINOPRIL
     Indication: Product used for unknown indication
     Route: 065

REACTIONS (6)
  - Angioedema [Unknown]
  - Schizophrenia [Unknown]
  - White blood cell count increased [Unknown]
  - Tachycardia [Unknown]
  - Dysphagia [Unknown]
  - Dysarthria [Unknown]

NARRATIVE: CASE EVENT DATE: 20220801
